FAERS Safety Report 11271000 (Version 1)
Quarter: 2015Q3

REPORT INFORMATION
  Report Type: Spontaneous
  Country: DK (occurrence: DK)
  Receive Date: 20150714
  Receipt Date: 20150714
  Transmission Date: 20151125
  Serious: Yes (Death, Hospitalization)
  Sender: FDA-Public Use
  Company Number: DK-MYLANLABS-2015M1022599

PATIENT

DRUGS (3)
  1. MYCOPHENOLATE MOFETIL. [Suspect]
     Active Substance: MYCOPHENOLATE MOFETIL
     Indication: CHRONIC KIDNEY DISEASE
     Dosage: 1 G/DAY
     Route: 065
     Dates: start: 2008
  2. METHYLPREDNISOLONE SODIUM SUCCINATE. [Concomitant]
     Active Substance: METHYLPREDNISOLONE SODIUM SUCCINATE
     Indication: GRANULOMATOSIS WITH POLYANGIITIS
     Route: 042
  3. PREDNISOLONE. [Suspect]
     Active Substance: PREDNISOLONE
     Indication: CHRONIC KIDNEY DISEASE
     Dosage: 25 MG/DAY
     Route: 065
     Dates: start: 2008

REACTIONS (1)
  - Bronchopulmonary aspergillosis [Fatal]
